FAERS Safety Report 10485672 (Version 1)
Quarter: 2014Q4

REPORT INFORMATION
  Report Type: Spontaneous
  Country: US (occurrence: CA)
  Receive Date: 20141001
  Receipt Date: 20141001
  Transmission Date: 20150528
  Serious: Yes (Other)
  Sender: FDA-Public Use
  Company Number: 2014SP005561

PATIENT
  Age: 6 Year
  Sex: Male

DRUGS (6)
  1. BUSULFAN [Suspect]
     Active Substance: BUSULFAN
     Indication: PRODUCT USED FOR UNKNOWN INDICATION
  2. METHOTREXATE [Suspect]
     Active Substance: METHOTREXATE
     Indication: PRODUCT USED FOR UNKNOWN INDICATION
  3. TACROLIMUS CAPSULES [Suspect]
     Active Substance: TACROLIMUS
     Indication: PRODUCT USED FOR UNKNOWN INDICATION
  4. OCTREOTIDE [Suspect]
     Active Substance: OCTREOTIDE
  5. CYCLOPHOSPHAMIDE. [Suspect]
     Active Substance: CYCLOPHOSPHAMIDE
  6. MESNA. [Suspect]
     Active Substance: MESNA
     Indication: PRODUCT USED FOR UNKNOWN INDICATION

REACTIONS (4)
  - Migraine [Unknown]
  - Aphasia [Unknown]
  - Graft versus host disease [Unknown]
  - Drug ineffective [Unknown]
